FAERS Safety Report 7717136-X (Version None)
Quarter: 2011Q3

REPORT INFORMATION
  Report Type: 
  Country: None (occurrence: None)
  Receive Date: 20110830
  Receipt Date: 20110825
  Transmission Date: 20111222
  Serious: Yes (Other)
  Sender: FDA-Public Use
  Company Number: US-TEVA-298094USA

PATIENT
  Sex: Male
  Weight: 86.26 kg

DRUGS (10)
  1. CLONAZEPAM [Concomitant]
  2. ASPIRIN [Concomitant]
  3. FISH OIL [Concomitant]
  4. COPAXONE [Suspect]
     Indication: MULTIPLE SCLEROSIS
     Route: 058
     Dates: start: 19980101
  5. PRAVASTATIN [Concomitant]
  6. GLUCOSAMINE [Concomitant]
  7. FLOMAX [Concomitant]
  8. CYMBALTA [Concomitant]
  9. GABAPENTIN [Concomitant]
  10. MULTI-VITAMIN [Concomitant]

REACTIONS (2)
  - LEFT ATRIAL DILATATION [None]
  - VENTRICULAR EXTRASYSTOLES [None]
